FAERS Safety Report 9919962 (Version 2)
Quarter: 2014Q1

REPORT INFORMATION
  Report Type: Report from Study
  Country: ZM (occurrence: ZM)
  Receive Date: 20140224
  Receipt Date: 20140224
  Transmission Date: 20141002
  Serious: Yes (Death)
  Sender: FDA-Public Use
  Company Number: ZM-ABBVIE-12P-189-0888901-00

PATIENT
  Sex: Female

DRUGS (5)
  1. ALUVIA TABLETS [Suspect]
     Indication: HIV INFECTION
     Route: 048
     Dates: start: 20110420, end: 20110529
  2. RALTEGRAVIR [Concomitant]
     Indication: HIV INFECTION
     Dates: start: 20110420, end: 20110529
  3. ETHAMBUTOL [Concomitant]
     Indication: PRODUCT USED FOR UNKNOWN INDICATION
     Dates: start: 20110309, end: 20110529
  4. PYRAZINAMIDE [Concomitant]
     Indication: PRODUCT USED FOR UNKNOWN INDICATION
     Dates: start: 20110309, end: 20110529
  5. PYRIDOXINE [Concomitant]
     Indication: PRODUCT USED FOR UNKNOWN INDICATION
     Dates: start: 20110309, end: 20110529

REACTIONS (7)
  - Pneumonitis [Fatal]
  - Anaemia [Fatal]
  - Cervix carcinoma [Fatal]
  - Oral candidiasis [Fatal]
  - Pulmonary tuberculosis [Fatal]
  - Genital herpes [Fatal]
  - Diarrhoea [Fatal]
